FAERS Safety Report 10052990 (Version 1)
Quarter: 2014Q2

REPORT INFORMATION
  Report Type: Spontaneous
  Country: FR (occurrence: FR)
  Receive Date: 20140402
  Receipt Date: 20140402
  Transmission Date: 20141212
  Serious: Yes (Life-Threatening)
  Sender: FDA-Public Use
  Company Number: FR-GE HEALTHCARE MEDICAL DIAGNOSTICS-VISP-PR-1403S-0143

PATIENT
  Age: 69 Year
  Sex: Male

DRUGS (3)
  1. VISIPAQUE [Suspect]
     Indication: MYOCARDIAL INFARCTION
     Route: 042
     Dates: start: 20100615, end: 20100615
  2. VISIPAQUE [Suspect]
     Indication: DIAGNOSTIC PROCEDURE
  3. COZAAR [Concomitant]

REACTIONS (1)
  - Circulatory collapse [Recovered/Resolved]
